FAERS Safety Report 5597026-1 (Version None)
Quarter: 2007Q4

REPORT INFORMATION
  Report Type: 
  Country: None (occurrence: None)
  Receive Date: 20071221
  Receipt Date: 20071012
  Transmission Date: 20080405
  Serious: No
  Sender: FDA-Public Use
  Company Number: SPV1-2007-04526

PATIENT
  Sex: Female

DRUGS (2)
  1. VYVANSE [Suspect]
     Dosage: 70 MG ; 140 MG, ONE DOSE
  2. ADDERALL 10 [Concomitant]

REACTIONS (2)
  - DRUG INEFFECTIVE [None]
  - OVERDOSE [None]
